FAERS Safety Report 12899592 (Version 1)
Quarter: 2016Q4

REPORT INFORMATION
  Report Type: Spontaneous
  Country: US (occurrence: US)
  Receive Date: 20161030
  Receipt Date: 20161030
  Transmission Date: 20170207
  Serious: Yes (Disabling, Other)
  Sender: FDA-Public Use
  Company Number: None

PATIENT
  Age: 29 Year
  Sex: Male
  Weight: 77.4 kg

DRUGS (5)
  1. INCONSISTENT B COMPLEX [Concomitant]
  2. IBUPROFEN. [Concomitant]
     Active Substance: IBUPROFEN
  3. VITAMIN [Concomitant]
     Active Substance: VITAMINS
  4. FLONASE [Suspect]
     Active Substance: FLUTICASONE PROPIONATE
     Indication: RHINITIS ALLERGIC
     Dosage: ?          OTHER ROUTE:INTRANASAL?
  5. ALEVE [Concomitant]
     Active Substance: NAPROXEN SODIUM

REACTIONS (2)
  - Anosmia [None]
  - Ageusia [None]

NARRATIVE: CASE EVENT DATE: 20150409
